FAERS Safety Report 23957834 (Version 1)
Quarter: 2024Q2

REPORT INFORMATION
  Report Type: Report from Study
  Country: IT (occurrence: IT)
  Receive Date: 20240610
  Receipt Date: 20240610
  Transmission Date: 20240716
  Serious: Yes (Other)
  Sender: FDA-Public Use
  Company Number: None

PATIENT
  Age: 62 Year
  Sex: Female

DRUGS (3)
  1. PACLITAXEL [Suspect]
     Active Substance: PACLITAXEL
     Indication: Non-small cell lung cancer
     Dosage: TIME INTERVAL: CYCLICAL: 200 MG CYCLIC ADMINISTRATION
     Route: 042
     Dates: start: 20240423, end: 20240423
  2. PEMBROLIZUMAB [Suspect]
     Active Substance: PEMBROLIZUMAB
     Indication: Non-small cell lung cancer
     Dosage: TIME INTERVAL: CYCLICAL: 200 MG CYCLIC ADMINISTRATION
     Route: 042
     Dates: start: 20240423, end: 20240423
  3. CARBOPLATIN [Suspect]
     Active Substance: CARBOPLATIN
     Indication: Non-small cell lung cancer
     Dosage: TIME INTERVAL: CYCLICAL: 290MG CYCLIC ADMINISTRATION
     Route: 042
     Dates: start: 20240423, end: 20240423

REACTIONS (1)
  - Infusion related reaction [Recovered/Resolved]

NARRATIVE: CASE EVENT DATE: 20240423
